FAERS Safety Report 7290664-X (Version None)
Quarter: 2011Q1

REPORT INFORMATION
  Report Type: 
  Country: None (occurrence: None)
  Receive Date: 20110131
  Receipt Date: 20110120
  Transmission Date: 20110831
  Serious: Yes (Death)
  Sender: FDA-Public Use
  Company Number: 2011SP000239

PATIENT
  Age: 45 Year
  Sex: Female

DRUGS (9)
  1. IRBESARTAN [Suspect]
     Dates: end: 20090101
  2. METOPROLOL (25 MG) [Suspect]
     Dosage: 250 MG; ORAL
     Route: 048
     Dates: end: 20090101
  3. METFORMIN (1000 MG) [Suspect]
     Dosage: 9000 MG; ORAL
     Route: 048
     Dates: end: 20090101
  4. HYDROCHLOROTHIAZIDE [Suspect]
     Dates: end: 20090101
  5. AMLODIPINE [Suspect]
     Dosage: ORAL
     Route: 048
     Dates: end: 20090101
  6. SITAGLIPTIN [Suspect]
     Dates: end: 20090101
  7. FENOFIBRIC ACID [Suspect]
     Dates: end: 20090101
  8. LUNESTA [Suspect]
     Dosage: ORAL
     Dates: end: 20090101
  9. ZOLPIDEM [Suspect]
     Dates: end: 20090101

REACTIONS (16)
  - SELF-MEDICATION [None]
  - HAEMOGLOBIN DECREASED [None]
  - ASPARTATE AMINOTRANSFERASE INCREASED [None]
  - MULTIPLE DRUG OVERDOSE [None]
  - BODY TEMPERATURE DECREASED [None]
  - COMPLETED SUICIDE [None]
  - HYPOTENSION [None]
  - FAECAL INCONTINENCE [None]
  - ATRIOVENTRICULAR BLOCK FIRST DEGREE [None]
  - HAEMODIALYSIS [None]
  - LACTIC ACIDOSIS [None]
  - OXYGEN SATURATION DECREASED [None]
  - DYSARTHRIA [None]
  - HEART RATE DECREASED [None]
  - RESPIRATORY RATE INCREASED [None]
  - ALANINE AMINOTRANSFERASE INCREASED [None]
